FAERS Safety Report 9382683 (Version 1)
Quarter: 2013Q3

REPORT INFORMATION
  Report Type: Spontaneous
  Country: GB (occurrence: GB)
  Receive Date: 20130703
  Receipt Date: 20130703
  Transmission Date: 20140515
  Serious: Yes (Other)
  Sender: FDA-Public Use
  Company Number: GB-GLAXOSMITHKLINE-B0903794A

PATIENT
  Age: 5 Year
  Sex: Male

DRUGS (3)
  1. BETNOVATE [Suspect]
     Indication: PHIMOSIS
     Dosage: 1APP TWICE PER DAY
     Route: 061
     Dates: start: 20130624
  2. VENTOLIN [Concomitant]
  3. CLENIL [Concomitant]

REACTIONS (2)
  - Croup infectious [Unknown]
  - Bronchospasm [Unknown]
